FAERS Safety Report 6598649-3 (Version None)
Quarter: 2010Q1

REPORT INFORMATION
  Report Type: 
  Country: None (occurrence: None)
  Receive Date: 20100224
  Receipt Date: 20100210
  Transmission Date: 20100710
  Serious: Yes (Hospitalization, Other)
  Sender: FDA-Public Use
  Company Number: US-JNJFOC-20091102327

PATIENT
  Age: 43 Year
  Sex: Female

DRUGS (6)
  1. LEVAQUIN [Suspect]
     Indication: INFECTION
     Route: 048
  2. IBUPROFEN [Suspect]
     Indication: DRUG USE FOR UNKNOWN INDICATION
     Route: 065
  3. AMBIEN [Suspect]
     Indication: INSOMNIA
     Route: 048
  4. ADVIL PM [Suspect]
     Indication: INSOMNIA
     Route: 065
  5. FLAGYL [Concomitant]
     Indication: INFECTION
     Route: 048
  6. COGENTIN [Concomitant]
     Indication: MOVEMENT DISORDER
     Route: 048

REACTIONS (3)
  - INSOMNIA [None]
  - PARANOIA [None]
  - PSYCHOTIC DISORDER [None]
